FAERS Safety Report 5520928-9 (Version None)
Quarter: 2007Q4

REPORT INFORMATION
  Report Type: 
  Country: None (occurrence: None)
  Receive Date: 20071116
  Receipt Date: 20071116
  Transmission Date: 20080405
  Serious: Yes (Other)
  Sender: FDA-Public Use
  Company Number: None

PATIENT
  Sex: Male
  Weight: 72.5755 kg

DRUGS (1)
  1. NEURONTIN [Suspect]
     Indication: SCIATICA
     Dosage: 1 TABLET 3 TIMES A DAY PO
     Route: 048
     Dates: start: 20070206, end: 20070314

REACTIONS (7)
  - DEPRESSED MOOD [None]
  - EMOTIONAL DISORDER [None]
  - FATIGUE [None]
  - MIGRAINE [None]
  - SOCIAL AVOIDANT BEHAVIOUR [None]
  - SUICIDAL IDEATION [None]
  - TREATMENT NONCOMPLIANCE [None]
